FAERS Safety Report 11555581 (Version 2)
Quarter: 2015Q4

REPORT INFORMATION
  Report Type: Spontaneous
  Country: JP (occurrence: JP)
  Receive Date: 20150925
  Receipt Date: 20151008
  Transmission Date: 20160304
  Serious: Yes (Other)
  Sender: FDA-Public Use
  Company Number: PHHY2015JP116110

PATIENT
  Age: 81 Year
  Sex: Male

DRUGS (1)
  1. RIVASTACH [Suspect]
     Active Substance: RIVASTIGMINE
     Indication: DEMENTIA ALZHEIMER^S TYPE
     Dosage: 9.5 MG/ 24 HOUR (PATCH 10 (CM2), 18 MG DAILY RIVASTIGMINE BASE)
     Route: 062

REACTIONS (1)
  - Parkinson^s disease [Not Recovered/Not Resolved]
